FAERS Safety Report 6292274-X (Version None)
Quarter: 2009Q3

REPORT INFORMATION
  Report Type: 
  Country: None (occurrence: None)
  Receive Date: 20090730
  Receipt Date: 20090730
  Transmission Date: 20100115
  Serious: Yes (Other)
  Sender: FDA-Public Use
  Company Number: None

PATIENT
  Sex: Female

DRUGS (1)
  1. DIVALPROEX SODIUM EXTENDED RELEASE [Suspect]
     Indication: BIPOLAR DISORDER
     Dosage: 500 MG AT BEDTIME PO
     Route: 048
     Dates: start: 20090625, end: 20090717

REACTIONS (2)
  - MALAISE [None]
  - MOOD ALTERED [None]
